FAERS Safety Report 5883513-5 (Version None)
Quarter: 2008Q3

REPORT INFORMATION
  Report Type: 
  Country: None (occurrence: None)
  Receive Date: 20080912
  Receipt Date: 20080912
  Transmission Date: 20090109
  Serious: Yes (Other)
  Sender: FDA-Public Use
  Company Number: None

PATIENT
  Age: 39 Year
  Sex: Female
  Weight: 63.5036 kg

DRUGS (5)
  1. ZOLPIDEM [Suspect]
     Indication: INSOMNIA
     Dosage: 1/2 OF A 10 MG TABLET PRN PO
     Route: 048
     Dates: start: 20050901, end: 20080911
  2. SYNTHROID [Concomitant]
  3. YASMIN [Concomitant]
  4. NASONEX [Concomitant]
  5. CIPRO [Concomitant]

REACTIONS (6)
  - ABNORMAL BEHAVIOUR [None]
  - AGGRESSION [None]
  - AMNESIA [None]
  - DYSPHONIA [None]
  - FEELING DRUNK [None]
  - SLEEP SEX [None]
